FAERS Safety Report 19910329 (Version 1)
Quarter: 2021Q4

REPORT INFORMATION
  Report Type: Spontaneous
  Country: EC (occurrence: EC)
  Receive Date: 20211004
  Receipt Date: 20211004
  Transmission Date: 20220303
  Serious: Yes (Death, Other)
  Sender: FDA-Public Use
  Company Number: EC-PFIZER INC-202101241239

PATIENT
  Sex: Female

DRUGS (1)
  1. ENBREL [Suspect]
     Active Substance: ETANERCEPT
     Indication: Product used for unknown indication
     Dosage: 1 VIAL, WEEKLY
     Route: 058
     Dates: start: 20180827, end: 20210606

REACTIONS (1)
  - Death [Unknown]

NARRATIVE: CASE EVENT DATE: 20210826
